FAERS Safety Report 5921591-5 (Version None)
Quarter: 2008Q4

REPORT INFORMATION
  Report Type: 
  Country: None (occurrence: None)
  Receive Date: 20081016
  Receipt Date: 20081016
  Transmission Date: 20090506
  Serious: Yes (Hospitalization)
  Sender: FDA-Public Use
  Company Number: None

PATIENT
  Age: 34 Year
  Sex: Female
  Weight: 26.7622 kg

DRUGS (4)
  1. SEROQUEL [Suspect]
     Indication: ANOREXIA NERVOSA
     Dosage: 100MG BID (NOTE DOSE GRADUALLY INCREASED TO THIS)
     Dates: start: 20080908, end: 20081014
  2. PROTONIX [Concomitant]
  3. SYNTHROID [Concomitant]
  4. MIRALAX [Concomitant]

REACTIONS (9)
  - ASPARTATE AMINOTRANSFERASE INCREASED [None]
  - BLOOD GLUCOSE DECREASED [None]
  - BLOOD PRESSURE SYSTOLIC DECREASED [None]
  - BLOOD UREA INCREASED [None]
  - DYSSTASIA [None]
  - FATIGUE [None]
  - TRI-IODOTHYRONINE DECREASED [None]
  - WEIGHT DECREASED [None]
  - WHITE BLOOD CELL COUNT DECREASED [None]
